FAERS Safety Report 26108237 (Version 1)
Quarter: 2025Q4

REPORT INFORMATION
  Report Type: Spontaneous
  Country: US (occurrence: None)
  Receive Date: 20251201
  Receipt Date: 20251201
  Transmission Date: 20260118
  Serious: Yes (Hospitalization)
  Sender: FDA-CTU
  Company Number: None

PATIENT
  Sex: Female

DRUGS (11)
  1. COSENTYX [Suspect]
     Active Substance: SECUKINUMAB
     Indication: Asthma
     Dosage: FREQUENCY : MONTHLY;?
     Route: 058
     Dates: start: 20240409
  2. ALBUTEROL TAB2MG [Concomitant]
  3. ASMANEX 14 AER 220MCG [Concomitant]
  4. BUPROPION [Concomitant]
     Active Substance: BUPROPION
  5. CELEBREX CAP 50MG [Concomitant]
  6. DIOVAN TAB 320MG [Concomitant]
  7. DUPIXENT [Concomitant]
     Active Substance: DUPILUMAB
  8. FAMOTIDINE [Concomitant]
     Active Substance: FAMOTIDINE
  9. FLUTICASONE [Concomitant]
     Active Substance: FLUTICASONE
  10. FOLIC ACID TAB 1MG [Concomitant]
  11. GABAPENTIN [Concomitant]
     Active Substance: GABAPENTIN

REACTIONS (2)
  - Arthralgia [None]
  - Nausea [None]
